FAERS Safety Report 4749491-7 (Version None)
Quarter: 2005Q3

REPORT INFORMATION
  Report Type: 
  Country: None (occurrence: None)
  Receive Date: 20050819
  Receipt Date: 20050808
  Transmission Date: 20060218
  Serious: Yes (Death)
  Sender: FDA-Public Use
  Company Number: 2005S1005665

PATIENT
  Age: 45 Year
  Sex: Male
  Weight: 65.318 kg

DRUGS (10)
  1. CLOZAPINE [Suspect]
     Indication: SCHIZOPHRENIA
     Dosage: 50 MG; HS; PO
     Route: 048
     Dates: end: 20050601
  2. CLOZAPINE [Suspect]
     Dosage: 100 MG; QAM; PO; 400; MG; HS; PO
     Route: 048
     Dates: end: 20050601
  3. ATENOLOL [Concomitant]
  4. SIMVASTATIN [Concomitant]
  5. AMLODIPINE BESILATE [Concomitant]
  6. BENAZEPRIL [Concomitant]
  7. HYDROCHLORIDE [Concomitant]
  8. CLONAZEPAM [Concomitant]
  9. OLANZAPINE [Concomitant]
  10. METFORMIN [Concomitant]

REACTIONS (3)
  - CARDIAC ARREST [None]
  - FALL [None]
  - MYOCARDIAL INFARCTION [None]
